FAERS Safety Report 5410970-0 (Version None)
Quarter: 2007Q3

REPORT INFORMATION
  Report Type: 
  Country: None (occurrence: None)
  Receive Date: 20070810
  Receipt Date: 20070711
  Transmission Date: 20080115
  Serious: No
  Sender: FDA-Public Use
  Company Number: A0656608A

PATIENT
  Age: 84 Year
  Sex: Female

DRUGS (11)
  1. ALTABAX [Suspect]
     Route: 061
     Dates: start: 20070608, end: 20070609
  2. BACTROBAN [Concomitant]
  3. ALDACTONE [Concomitant]
  4. DARVOCET [Concomitant]
  5. ZANTAC 150 [Concomitant]
  6. LEVOTHYROXINE SODIUM [Concomitant]
  7. BUMEX [Concomitant]
  8. UNKNOWN MEDICATION [Concomitant]
  9. ASPIRIN [Concomitant]
  10. CENTRUM SILVER [Concomitant]
  11. FOLIC ACID [Concomitant]

REACTIONS (3)
  - BURNING SENSATION [None]
  - MIDDLE INSOMNIA [None]
  - PAIN IN EXTREMITY [None]
